FAERS Safety Report 18238437 (Version 2)
Quarter: 2020Q3

REPORT INFORMATION
  Report Type: Report from Study
  Country: RU (occurrence: RU)
  Receive Date: 20200907
  Receipt Date: 20200915
  Transmission Date: 20201103
  Serious: Yes (Other)
  Sender: FDA-Public Use
  Company Number: RU-009507513-2009RUS001843

PATIENT
  Sex: Female

DRUGS (3)
  1. PACLITAXEL. [Suspect]
     Active Substance: PACLITAXEL
     Dosage: 90 MILLIGRAM/SQ. METER, ON THE 1ST, 8TH AND 15TH DAYS OF THE 28?DAY CYCLE
     Dates: start: 20170615
  2. PACLITAXEL. [Suspect]
     Active Substance: PACLITAXEL
     Dosage: 72 MILLIGRAM/SQ. METER, CYCLICAL, 20% REDUCTION
  3. PEMBROLIZUMAB. [Suspect]
     Active Substance: PEMBROLIZUMAB
     Dosage: 200 MILLIGRAM, Q3W
     Route: 042
     Dates: start: 20170615

REACTIONS (1)
  - Hepatotoxicity [Unknown]
